FAERS Safety Report 9704574 (Version 1)
Quarter: 2013Q4

REPORT INFORMATION
  Report Type: Spontaneous
  Country: US (occurrence: None)
  Receive Date: 20131121
  Receipt Date: 20131121
  Transmission Date: 20140711
  Serious: No
  Sender: FDA-Public Use
  Company Number: None

PATIENT
  Age: 61 Year
  Sex: Female

DRUGS (1)
  1. DYKIXETUBE *CTNBAKTA( [Suspect]
     Dates: start: 20120824, end: 20121004

REACTIONS (3)
  - Drug-induced liver injury [None]
  - Abdominal pain upper [None]
  - Nausea [None]
